FAERS Safety Report 16468586 (Version 1)
Quarter: 2019Q2

REPORT INFORMATION
  Report Type: Spontaneous
  Country: GB (occurrence: GB)
  Receive Date: 20190624
  Receipt Date: 20190624
  Transmission Date: 20190711
  Serious: Yes (Life-Threatening, Hospitalization, Other)
  Sender: FDA-Public Use
  Company Number: GB-HERITAGE PHARMACEUTICALS-2019HTG00289

PATIENT
  Age: 17 Year
  Sex: Male

DRUGS (1)
  1. VERAPAMIL HYDROCHLORIDE. [Suspect]
     Active Substance: VERAPAMIL HYDROCHLORIDE
     Dosage: AROUND 10 G
     Route: 048

REACTIONS (12)
  - Atrial fibrillation [Recovered/Resolved]
  - Sepsis [Recovered/Resolved]
  - Cardiac arrest [Recovered/Resolved]
  - Acute kidney injury [Recovered/Resolved]
  - Hypoxia [Recovered/Resolved]
  - Intentional overdose [Recovered/Resolved]
  - Haemodynamic instability [Recovered/Resolved]
  - Metabolic acidosis [Recovered/Resolved]
  - Electrocardiogram QRS complex prolonged [Recovered/Resolved]
  - Cardiomyopathy [Recovered/Resolved]
  - Bundle branch block left [Recovered/Resolved]
  - Generalised tonic-clonic seizure [Recovered/Resolved]
